FAERS Safety Report 4478577-X (Version None)
Quarter: 2004Q4

REPORT INFORMATION
  Report Type: 
  Country: None (occurrence: None)
  Receive Date: 20041019
  Receipt Date: 20040928
  Transmission Date: 20050328
  Serious: Yes (Life-Threatening, Hospitalization)
  Sender: FDA-Public Use
  Company Number: PHBS2004JP13020

PATIENT
  Age: 72 Year
  Sex: Female
  Weight: 60 kg

DRUGS (4)
  1. VOLTAREN [Suspect]
     Indication: ANALGESIC THERAPY
     Dosage: 50 MG, ONCE/SINGLE
     Route: 054
     Dates: start: 20040926, end: 20040926
  2. DIOVAN [Concomitant]
     Indication: HYPERTENSION
     Dosage: 80 MG/DAY
     Route: 048
     Dates: start: 20040725
  3. NORVASC [Concomitant]
     Indication: HYPERTENSION
     Dosage: 5 MG/DAY
     Route: 048
     Dates: start: 20031025
  4. KETOPROFEN [Concomitant]
     Indication: MONARTHRITIS
     Route: 062
     Dates: start: 20040716

REACTIONS (7)
  - ANAPHYLACTIC SHOCK [None]
  - ASTHENIA [None]
  - BLOOD PRESSURE DECREASED [None]
  - CYANOSIS [None]
  - HYPOAESTHESIA [None]
  - NAUSEA [None]
  - VOMITING [None]
